FAERS Safety Report 5465313-3 (Version None)
Quarter: 2007Q3

REPORT INFORMATION
  Report Type: 
  Country: None (occurrence: None)
  Receive Date: 20070924
  Receipt Date: 20070907
  Transmission Date: 20080115
  Serious: Yes (Other)
  Sender: FDA-Public Use
  Company Number: ES-BAYER-200714634GDS

PATIENT
  Age: 40 Year
  Sex: Male
  Weight: 72 kg

DRUGS (11)
  1. SORAFENIB [Suspect]
     Indication: NON-SMALL CELL LUNG CANCER
     Route: 048
     Dates: start: 20070725, end: 20070807
  2. CISPLATIN [Suspect]
     Indication: NON-SMALL CELL LUNG CANCER
     Route: 042
     Dates: start: 20070725, end: 20070725
  3. GEMCITABINE HCL [Suspect]
     Indication: NON-SMALL CELL LUNG CANCER
     Route: 042
     Dates: start: 20070725, end: 20070725
  4. GEMCITABINE HCL [Suspect]
     Route: 042
     Dates: start: 20070801, end: 20070801
  5. ARANESP [Concomitant]
     Indication: ANAEMIA
     Route: 058
     Dates: start: 20070725, end: 20070808
  6. TETRAZEPAM [Concomitant]
     Indication: PAIN
     Route: 048
     Dates: start: 20070725
  7. DURAGESIC-100 [Concomitant]
     Indication: PAIN
     Route: 048
     Dates: start: 20070725
  8. GABAPENTIN [Concomitant]
     Indication: PAIN
     Route: 048
     Dates: start: 20070725
  9. IBUPROFEN [Concomitant]
     Indication: PAIN
     Route: 048
     Dates: start: 20070725
  10. OMEPRAZOLE [Concomitant]
     Indication: PROPHYLAXIS
     Route: 048
     Dates: start: 20070725
  11. FERROUS SULFATE TAB [Concomitant]
     Indication: ANAEMIA
     Route: 048
     Dates: start: 20070725

REACTIONS (1)
  - CEREBRAL ISCHAEMIA [None]
